FAERS Safety Report 16216458 (Version 2)
Quarter: 2019Q2

REPORT INFORMATION
  Report Type: Spontaneous
  Country: BR (occurrence: BR)
  Receive Date: 20190419
  Receipt Date: 20190502
  Transmission Date: 20190711
  Serious: Yes (Other)
  Sender: FDA-Public Use
  Company Number: BR-PFIZER INC-2019075697

PATIENT
  Age: 53 Year
  Sex: Male

DRUGS (7)
  1. REMERON [Concomitant]
     Active Substance: MIRTAZAPINE
     Dosage: UNK
     Dates: start: 201808
  2. RENITEC [ENALAPRIL MALEATE] [Concomitant]
     Dosage: UNK
  3. PRISTIQ EXTENDED-RELEASE [Suspect]
     Active Substance: DESVENLAFAXINE SUCCINATE
     Indication: DEPRESSION
     Dosage: 50 MG (1 TABLET), 1X/DAY
     Dates: start: 201810
  4. PRISTIQ EXTENDED-RELEASE [Suspect]
     Active Substance: DESVENLAFAXINE SUCCINATE
     Dosage: 100 MG (1 TABLET), 1X/DAY
     Dates: start: 201812, end: 20190410
  5. PRISTIQ EXTENDED-RELEASE [Suspect]
     Active Substance: DESVENLAFAXINE SUCCINATE
     Dosage: 50 MG (1 TABLET), 1X/DAY
     Dates: end: 201812
  6. MAREVAN [Concomitant]
     Active Substance: WARFARIN SODIUM
     Dosage: UNK
  7. PRISTIQ EXTENDED-RELEASE [Suspect]
     Active Substance: DESVENLAFAXINE SUCCINATE
     Dosage: 50 MG (1 TABLET), 1X/DAY

REACTIONS (6)
  - Product residue present [Recovered/Resolved]
  - Fear [Recovered/Resolved]
  - Aspartate aminotransferase increased [Recovered/Resolved]
  - Depression [Not Recovered/Not Resolved]
  - Drug ineffective [Not Recovered/Not Resolved]
  - Musculoskeletal stiffness [Not Recovered/Not Resolved]

NARRATIVE: CASE EVENT DATE: 201810
